FAERS Safety Report 5023593-2 (Version None)
Quarter: 2006Q2

REPORT INFORMATION
  Report Type: 
  Country: None (occurrence: None)
  Receive Date: 20060612
  Receipt Date: 20060531
  Transmission Date: 20061013
  Serious: Yes (Other)
  Sender: FDA-Public Use
  Company Number: US-ROCHE-450052

PATIENT
  Age: 53 Year
  Sex: Female
  Weight: 64.9 kg

DRUGS (3)
  1. RIBAVIRIN [Suspect]
     Route: 048
     Dates: start: 19980315
  2. RIBAVIRIN [Suspect]
     Dosage: DOSE REDUCED AT WEEK 18 DUE TO NAUSEA AND FATIGUE.
     Route: 048
     Dates: end: 19980910
  3. INTERFERON ALFA-2B [Suspect]
     Route: 058
     Dates: start: 19980315, end: 19980910

REACTIONS (11)
  - BLOOD BICARBONATE DECREASED [None]
  - BLOOD PH DECREASED [None]
  - BLOOD POTASSIUM INCREASED [None]
  - CARBON DIOXIDE DECREASED [None]
  - DIABETIC KETOACIDOSIS [None]
  - DISEASE RECURRENCE [None]
  - HEPATIC FIBROSIS [None]
  - HEPATIC NECROSIS [None]
  - HEPATITIS C VIRUS [None]
  - PCO2 DECREASED [None]
  - PO2 INCREASED [None]
